FAERS Safety Report 10075688 (Version 1)
Quarter: 2014Q2

REPORT INFORMATION
  Report Type: Report from Study
  Country: AR (occurrence: AR)
  Receive Date: 20140414
  Receipt Date: 20140414
  Transmission Date: 20141212
  Serious: Yes (Hospitalization, Other)
  Sender: FDA-Public Use
  Company Number: AR-US-EMD SERONO, INC.-7281865

PATIENT
  Age: 5 Year
  Sex: Male

DRUGS (1)
  1. SAIZEN [Suspect]
     Indication: SILVER-RUSSELL SYNDROME
     Dates: start: 20101230, end: 20140403

REACTIONS (2)
  - Medical device removal [Unknown]
  - Limb asymmetry [Unknown]
